FAERS Safety Report 17100021 (Version 1)
Quarter: 2019Q4

REPORT INFORMATION
  Report Type: Spontaneous
  Country: US (occurrence: US)
  Receive Date: 20191202
  Receipt Date: 20191202
  Transmission Date: 20200122
  Serious: Yes (Other)
  Sender: FDA-Public Use
  Company Number: US-AMGEN-USASP2019199377

PATIENT
  Age: 76 Year
  Sex: Female

DRUGS (1)
  1. PROLIA [Suspect]
     Active Substance: DENOSUMAB
     Indication: OSTEOPOROSIS POSTMENOPAUSAL
     Dosage: UNK
     Route: 065
     Dates: start: 2016

REACTIONS (5)
  - Compression fracture [Unknown]
  - Fracture [Not Recovered/Not Resolved]
  - Thoracic vertebral fracture [Unknown]
  - Foot fracture [Unknown]
  - Fracture delayed union [Not Recovered/Not Resolved]

NARRATIVE: CASE EVENT DATE: 2018
